FAERS Safety Report 8408287-5 (Version None)
Quarter: 2012Q2

REPORT INFORMATION
  Report Type: 
  Country: None (occurrence: None)
  Receive Date: 20120604
  Receipt Date: 20120530
  Transmission Date: 20120825
  Serious: Yes (Death)
  Sender: FDA-Public Use
  Company Number: AT-BAYER-2012-043997

PATIENT
  Age: 76 Year
  Sex: Male
  Weight: 80 kg

DRUGS (5)
  1. SIMVASTATIN [Concomitant]
     Indication: CORONARY ARTERY DISEASE
  2. ASPIRIN [Concomitant]
     Indication: CORONARY ARTERY DISEASE
     Dosage: 100 MG, UNK
     Dates: end: 20120509
  3. NEXAVAR [Suspect]
     Indication: HEPATIC NEOPLASM MALIGNANT
     Dosage: DAILY DOSE 600 MG
     Dates: start: 20120323, end: 20120502
  4. NEXAVAR [Suspect]
     Dosage: 200 MG, TID
     Route: 048
     Dates: start: 20120411, end: 20120502
  5. SIMVASTATIN [Concomitant]
     Indication: HYPERCHOLESTEROLAEMIA
     Dosage: 20 MG, QD
     Dates: end: 20120509

REACTIONS (2)
  - MULTI-ORGAN FAILURE [None]
  - MYOCARDIAL INFARCTION [None]
